FAERS Safety Report 4835397-1 (Version None)
Quarter: 2005Q4

REPORT INFORMATION
  Report Type: 
  Country: None (occurrence: None)
  Receive Date: 20051118
  Receipt Date: 20051107
  Transmission Date: 20060501
  Serious: Yes (Hospitalization)
  Sender: FDA-Public Use
  Company Number: 2005BI015856

PATIENT
  Age: 47 Year
  Sex: Female

DRUGS (5)
  1. AVONEX [Suspect]
     Indication: MULTIPLE SCLEROSIS
     Dosage: 30 UG; QW; IM
     Route: 030
     Dates: start: 19980401
  2. AVONEX [Suspect]
     Indication: MULTIPLE SCLEROSIS
     Dosage: 30 UG; QW; IM
     Route: 030
  3. NEURONTIN [Concomitant]
  4. PROVIGIL [Concomitant]
  5. NORTRIPTYLINE HCL [Concomitant]

REACTIONS (4)
  - CONDITION AGGRAVATED [None]
  - HYPERAESTHESIA [None]
  - HYSTERECTOMY [None]
  - MULTIPLE SCLEROSIS [None]
